FAERS Safety Report 4385688-6 (Version None)
Quarter: 2004Q2

REPORT INFORMATION
  Report Type: 
  Country: None (occurrence: None)
  Receive Date: 20040628
  Receipt Date: 20040615
  Transmission Date: 20050107
  Serious: Yes (Death)
  Sender: FDA-Public Use
  Company Number: GB-AMGEN-US080792

PATIENT
  Sex: Female

DRUGS (8)
  1. ENBREL [Suspect]
     Indication: CONNECTIVE TISSUE DISORDER
     Route: 058
     Dates: start: 20031020, end: 20031201
  2. AMITRIPTYLINE HCL [Concomitant]
     Dates: end: 20040323
  3. PREMPAK-C [Concomitant]
     Dates: end: 20040323
  4. CALCIUM CARBONATE [Concomitant]
     Dates: end: 20040323
  5. CO-PROXAMOL [Concomitant]
     Dates: end: 20040323
  6. ASPIRIN [Concomitant]
     Dates: end: 20040323
  7. BETAMETHASONE [Concomitant]
     Dates: end: 20040323
  8. PREDNISOLONE [Concomitant]
     Dates: end: 20040323

REACTIONS (1)
  - CEREBRAL HAEMORRHAGE [None]
